FAERS Safety Report 5195867-6 (Version None)
Quarter: 2007Q1

REPORT INFORMATION
  Report Type: 
  Country: None (occurrence: None)
  Receive Date: 20070102
  Receipt Date: 20061228
  Transmission Date: 20070707
  Serious: Yes (Hospitalization)
  Sender: FDA-Public Use
  Company Number: US-GLAXOSMITHKLINE-A0632859A

PATIENT
  Sex: Male
  Weight: 99.5 kg

DRUGS (12)
  1. AVANDIA [Suspect]
     Dosage: 4MG TWICE PER DAY
     Route: 048
  2. AVANDAMET [Suspect]
     Dosage: 1TAB TWICE PER DAY
     Route: 048
  3. ASPIRIN [Suspect]
     Indication: DRUG USE FOR UNKNOWN INDICATION
     Route: 048
     Dates: end: 20050501
  4. CRESTOR [Concomitant]
     Dates: end: 20040101
  5. LISINOPRIL [Concomitant]
  6. TOPROL-XL [Concomitant]
  7. CIALIS [Concomitant]
  8. ZETIA [Concomitant]
     Dates: start: 20040101
  9. AMARYL [Concomitant]
     Dates: start: 20040801
  10. LEVITRA [Concomitant]
     Dates: start: 20040801
  11. LAMISIL [Concomitant]
  12. NORVASC [Concomitant]
     Indication: HYPERTENSION
     Dates: start: 20050801

REACTIONS (7)
  - CATARACT [None]
  - DIABETIC RETINOPATHY [None]
  - GLAUCOMA [None]
  - HYPOGLYCAEMIA [None]
  - RETINAL HAEMORRHAGE [None]
  - VISION BLURRED [None]
  - VISUAL ACUITY REDUCED [None]
